FAERS Safety Report 25352144 (Version 1)
Quarter: 2025Q2

REPORT INFORMATION
  Report Type: Spontaneous
  Country: KR (occurrence: KR)
  Receive Date: 20250523
  Receipt Date: 20250523
  Transmission Date: 20250716
  Serious: Yes (Other)
  Sender: JOHNSON AND JOHNSON
  Company Number: KR-JNJFOC-20250520621

PATIENT
  Sex: Male

DRUGS (1)
  1. ZYTIGA [Suspect]
     Active Substance: ABIRATERONE ACETATE
     Indication: Hormone-refractory prostate cancer
     Route: 048

REACTIONS (4)
  - Monoplegia [Unknown]
  - Peripheral swelling [Unknown]
  - Furuncle [Unknown]
  - Lipoma [Unknown]
